FAERS Safety Report 4711528-9 (Version None)
Quarter: 2005Q3

REPORT INFORMATION
  Report Type: 
  Country: None (occurrence: None)
  Receive Date: 20050708
  Receipt Date: 20050708
  Transmission Date: 20060218
  Serious: Yes (Hospitalization)
  Sender: FDA-Public Use
  Company Number: None

PATIENT
  Sex: Male
  Weight: 70.7611 kg

DRUGS (4)
  1. OXALIPLATIN (SANOFI) [Suspect]
     Indication: COLON CANCER METASTATIC
     Dosage: 180 MG IV 01 Q 21 DAYS
     Route: 042
     Dates: start: 20050614
  2. CAPECITABINE (ROCHE [Suspect]
     Indication: COLON CANCER METASTATIC
     Dosage: 1300 MG BID D1-14 Q 21D
     Dates: start: 20050627
  3. PROSCAR [Concomitant]
  4. CENTRUM MVI [Concomitant]

REACTIONS (4)
  - ABDOMINAL PAIN [None]
  - COLONIC PSEUDO-OBSTRUCTION [None]
  - NAUSEA [None]
  - VOMITING [None]
